FAERS Safety Report 24689299 (Version 1)
Quarter: 2024Q4

REPORT INFORMATION
  Report Type: Report from Study
  Country: AU (occurrence: AU)
  Receive Date: 20241203
  Receipt Date: 20241203
  Transmission Date: 20250114
  Serious: Yes (Death, Hospitalization)
  Sender: AMGEN
  Company Number: AU-AMGEN-AUSNI2024236666

PATIENT
  Age: 65 Year
  Sex: Male

DRUGS (1)
  1. TARLATAMAB [Suspect]
     Active Substance: TARLATAMAB
     Indication: Small cell lung cancer
     Dosage: UNK
     Route: 065

REACTIONS (1)
  - Death [Fatal]

NARRATIVE: CASE EVENT DATE: 20241101
